FAERS Safety Report 7325181 (Version 4)
Quarter: 2013Q4

REPORT INFORMATION
  Report Type: Spontaneous
  Country: US (occurrence: US)
  Receive Date: 20100319
  Receipt Date: 20131217
  Transmission Date: 20140711
  Serious: Yes (Other)
  Sender: FDA-Public Use
  Company Number: US-BAYER-201016533NA

PATIENT
  Age: 17 Year
  Sex: Female
  Weight: 58.96 kg

DRUGS (10)
  1. YAZ [Suspect]
     Indication: CONTRACEPTION
     Dosage: UNK
     Route: 048
     Dates: start: 20080218, end: 200807
  2. YAZ [Suspect]
     Indication: ACNE
  3. YAZ [Suspect]
     Indication: PREMENSTRUAL SYNDROME
  4. YAZ [Suspect]
     Indication: MENSTRUATION IRREGULAR
  5. XANAX [Concomitant]
     Indication: ANXIETY
  6. PREVACID [Concomitant]
     Indication: GASTROOESOPHAGEAL REFLUX DISEASE
  7. PREVACID [Concomitant]
     Indication: GASTRITIS
  8. IMITREX [Concomitant]
     Dosage: UNK
     Dates: start: 20080530
  9. AZITHROMYCIN [Concomitant]
     Dosage: 250 MG, UNK
     Dates: start: 20080606
  10. TYLENOL [PARACETAMOL] [Concomitant]
     Dosage: UNK
     Dates: start: 20080530

REACTIONS (11)
  - Cholelithiasis [None]
  - Cholecystitis chronic [None]
  - Gastrooesophageal reflux disease [Unknown]
  - Irritable bowel syndrome [None]
  - Abdominal pain [None]
  - Dyspepsia [None]
  - Depression [Unknown]
  - Pain [None]
  - Anxiety [Unknown]
  - Emotional distress [None]
  - Biliary colic [None]
